FAERS Safety Report 12454026 (Version 1)
Quarter: 2016Q2

REPORT INFORMATION
  Report Type: Report from Study
  Country: ES (occurrence: ES)
  Receive Date: 20160610
  Receipt Date: 20160610
  Transmission Date: 20160815
  Serious: Yes (Hospitalization)
  Sender: FDA-Public Use
  Company Number: ES-ROCHE-1772771

PATIENT
  Sex: Female
  Weight: 67 kg

DRUGS (2)
  1. LAPATINIB [Concomitant]
     Active Substance: LAPATINIB
     Indication: HER-2 POSITIVE BREAST CANCER
     Dosage: 3L
     Route: 048
     Dates: start: 201508, end: 201602
  2. CAPECITABINE. [Suspect]
     Active Substance: CAPECITABINE
     Indication: HER-2 POSITIVE BREAST CANCER
     Dosage: 3L
     Route: 048
     Dates: start: 201508, end: 201602

REACTIONS (1)
  - General physical health deterioration [Unknown]
